FAERS Safety Report 22344766 (Version 1)
Quarter: 2023Q2

REPORT INFORMATION
  Report Type: Report from Study
  Country: IN (occurrence: IN)
  Receive Date: 20230519
  Receipt Date: 20230519
  Transmission Date: 20230722
  Serious: Yes (Other)
  Sender: FDA-Public Use
  Company Number: IN-MYLANLABS-2023M1051821

PATIENT
  Age: 27 Year
  Sex: Female

DRUGS (20)
  1. METHOTREXATE [Suspect]
     Active Substance: METHOTREXATE
     Indication: B precursor type acute leukaemia
     Dosage: UNK, AS A PART OF BFM-95 PROTOCOL
     Route: 065
  2. DEXAMETHASONE [Suspect]
     Active Substance: DEXAMETHASONE
     Indication: B precursor type acute leukaemia
     Dosage: UNK,AS A PART OF BFM-95 PROTOCOL
     Route: 065
  3. DEXAMETHASONE [Suspect]
     Active Substance: DEXAMETHASONE
     Dosage: UNK,AS PER HYPERCVAD REGIMEN
     Route: 065
  4. DEXAMETHASONE [Suspect]
     Active Substance: DEXAMETHASONE
     Dosage: UNK,AS A PART OF BED REGIMEN
     Route: 065
  5. DOXORUBICIN [Suspect]
     Active Substance: DOXORUBICIN
     Indication: B precursor type acute leukaemia
     Dosage: UNK, AS A PART OF BFM-95 PROTOCOL
     Route: 065
  6. DOXORUBICIN [Suspect]
     Active Substance: DOXORUBICIN
     Dosage: UNK, AS PER HYPERCVAD REGIMEN
     Route: 065
  7. BORTEZOMIB [Suspect]
     Active Substance: BORTEZOMIB
     Indication: B precursor type acute leukaemia
     Dosage: UNK, AS A PART OF BED REGIMEN
     Route: 065
  8. CYTARABINE [Suspect]
     Active Substance: CYTARABINE
     Indication: B precursor type acute leukaemia
     Dosage: UNK, AS A PART OF BFM-95 PROTOCOL
     Route: 065
  9. ETOPOSIDE [Suspect]
     Active Substance: ETOPOSIDE
     Indication: B precursor type acute leukaemia
     Dosage: UNK, AS A PART OF BED REGIMEN
     Route: 065
  10. PREDNISOLONE [Suspect]
     Active Substance: PREDNISOLONE
     Indication: B precursor type acute leukaemia
     Dosage: UNK, AS A PART OF BFM-95 PROTOCOL
     Route: 065
  11. VINCRISTINE [Suspect]
     Active Substance: VINCRISTINE
     Indication: B precursor type acute leukaemia
     Dosage: UNK, AS A PART OF BFM-95 PROTOCOL
     Route: 065
  12. VINCRISTINE [Suspect]
     Active Substance: VINCRISTINE
     Dosage: UNK, AS PER HYPERCVAD REGIMEN
     Route: 065
  13. DAUNORUBICIN [Suspect]
     Active Substance: DAUNORUBICIN
     Indication: B precursor type acute leukaemia
     Dosage: UNK, AS A PART OF BFM-95 PROTOCOL
     Route: 065
  14. ASPARAGINASE [Suspect]
     Active Substance: ASPARAGINASE
     Indication: B precursor type acute leukaemia
     Dosage: UNK, AS A PART OF BFM-95 PROTOCOL
     Route: 065
  15. THIOGUANINE [Suspect]
     Active Substance: THIOGUANINE
     Indication: B precursor type acute leukaemia
     Dosage: UNK, AS A PART OF BFM-95 PROTOCOL
     Route: 065
  16. MERCAPTOPURINE [Suspect]
     Active Substance: MERCAPTOPURINE
     Indication: B precursor type acute leukaemia
     Dosage: AS A PART OF BFM-95 PROTOCOL
     Route: 065
  17. CYCLOPHOSPHAMIDE [Suspect]
     Active Substance: CYCLOPHOSPHAMIDE
     Indication: B precursor type acute leukaemia
     Dosage: UNK, AS A PART OF BFM-95 PROTOCOL
     Route: 065
  18. CYCLOPHOSPHAMIDE [Suspect]
     Active Substance: CYCLOPHOSPHAMIDE
     Dosage: UNK, AS PER HYPERCVAD REGIMEN
     Route: 065
  19. MESNA [Suspect]
     Active Substance: MESNA
     Indication: B precursor type acute leukaemia
     Dosage: UNK, AS A PART OF BFM-95 PROTOCOL
     Route: 065
  20. LEUCOVORIN [Suspect]
     Active Substance: LEUCOVORIN
     Indication: B precursor type acute leukaemia
     Dosage: UNK, AS A PART OF BFM-95 PROTOCOL
     Route: 065

REACTIONS (1)
  - Treatment failure [Unknown]
